FAERS Safety Report 7905696-5 (Version None)
Quarter: 2011Q4

REPORT INFORMATION
  Report Type: 
  Country: None (occurrence: None)
  Receive Date: 20111110
  Receipt Date: 20110127
  Transmission Date: 20120403
  Serious: Yes (Other)
  Sender: FDA-Public Use
  Company Number: US-BAYER-2011-011795

PATIENT
  Age: 31 Year
  Sex: Male

DRUGS (1)
  1. MAGNEVIST [Suspect]
     Dosage: 15 ML, ONCE
     Route: 042

REACTIONS (4)
  - DYSPNOEA [None]
  - URTICARIA [None]
  - SNEEZING [None]
  - ERYTHEMA [None]
